FAERS Safety Report 6577785-1 (Version None)
Quarter: 2010Q1

REPORT INFORMATION
  Report Type: 
  Country: None (occurrence: None)
  Receive Date: 20100211
  Receipt Date: 20100203
  Transmission Date: 20100710
  Serious: Yes (Death)
  Sender: FDA-Public Use
  Company Number: US-ROCHE-674747

PATIENT
  Sex: Female

DRUGS (1)
  1. XELODA [Suspect]
     Dosage: FOR 14 DAYS, THEN SEVEN DAYS OFF, OTHER INDICATION: LIVER CANCER
     Route: 065
     Dates: start: 20080801, end: 20091001

REACTIONS (1)
  - MALIGNANT NEOPLASM PROGRESSION [None]
